FAERS Safety Report 24166179 (Version 1)
Quarter: 2024Q3

REPORT INFORMATION
  Report Type: Spontaneous
  Country: US (occurrence: US)
  Receive Date: 20240802
  Receipt Date: 20240802
  Transmission Date: 20241017
  Serious: No
  Sender: AMGEN
  Company Number: US-AMGEN-USASP2024151272

PATIENT
  Age: 79 Year
  Sex: Male

DRUGS (1)
  1. KYPROLIS [Suspect]
     Active Substance: CARFILZOMIB
     Indication: Plasma cell myeloma
     Dosage: UNK UNK, QWK (ONCE A WEEK FOR 3 WEEKS AND THEN I AM OFF A WEEK)
     Route: 065
     Dates: start: 20240715

REACTIONS (3)
  - Urine output decreased [Unknown]
  - Blood creatinine abnormal [Unknown]
  - Glomerular filtration rate abnormal [Unknown]

NARRATIVE: CASE EVENT DATE: 20240701
